FAERS Safety Report 19963982 (Version 4)
Quarter: 2023Q1

REPORT INFORMATION
  Report Type: Spontaneous
  Country: US (occurrence: US)
  Receive Date: 20211018
  Receipt Date: 20230131
  Transmission Date: 20230417
  Serious: No
  Sender: FDA-Public Use
  Company Number: US-PFIZER INC-202101296581

PATIENT
  Age: 62 Year
  Sex: Female
  Weight: 90.26 kg

DRUGS (1)
  1. PREMPRO [Suspect]
     Active Substance: ESTROGENS, CONJUGATED\MEDROXYPROGESTERONE ACETATE
     Indication: Hormone replacement therapy
     Dosage: (0.0625/2.5 TABLET)
     Dates: start: 2011, end: 2018

REACTIONS (12)
  - Breast mass [Unknown]
  - Haematoma [Unknown]
  - Breast haematoma [Unknown]
  - Fall [Unknown]
  - Illness [Recovered/Resolved]
  - Hot flush [Recovered/Resolved]
  - Arthritis [Recovered/Resolved]
  - Headache [Recovered/Resolved]
  - Fatigue [Recovered/Resolved]
  - Menopausal symptoms [Recovered/Resolved]
  - Drug withdrawal syndrome [Recovered/Resolved]
  - Pain in extremity [Unknown]

NARRATIVE: CASE EVENT DATE: 20180101
